FAERS Safety Report 6103015-0 (Version None)
Quarter: 2009Q1

REPORT INFORMATION
  Report Type: 
  Country: None (occurrence: None)
  Receive Date: 20090305
  Receipt Date: 20090227
  Transmission Date: 20090719
  Serious: Yes (Hospitalization)
  Sender: FDA-Public Use
  Company Number: PHHY2008JP18733

PATIENT
  Sex: Male
  Weight: 80 kg

DRUGS (10)
  1. VOLTAREN [Suspect]
     Indication: POSTOPERATIVE CARE
     Dosage: 50 MG/DAY
     Route: 054
     Dates: start: 20060419, end: 20060501
  2. LOXONIN [Suspect]
     Indication: PROCEDURAL PAIN
     Dosage: 120 MG/DAY
     Route: 048
     Dates: start: 20060425, end: 20060426
  3. INTEBAN [Suspect]
     Dosage: 200 MG/DAY
     Route: 054
     Dates: start: 20060419, end: 20060427
  4. ROPION [Suspect]
     Indication: PROCEDURAL PAIN
     Dosage: 50 MG/DAY
     Dates: start: 20060430, end: 20060506
  5. HYPEN [Suspect]
     Indication: POSTOPERATIVE CARE
     Dosage: 300 MG/DAY
     Route: 048
     Dates: start: 20060427, end: 20060427
  6. BUPRENORPHINE HYDROCHLORIDE [Concomitant]
     Indication: POSTOPERATIVE CARE
     Route: 054
  7. PENTAZOCINE LACTATE [Concomitant]
     Indication: POSTOPERATIVE CARE
     Dosage: 15 MG/DAY
     Route: 030
     Dates: start: 20060419, end: 20060422
  8. LUVOX [Concomitant]
     Indication: POSTOPERATIVE CARE
     Dosage: 100 MG/DAY
     Route: 048
     Dates: start: 20060427, end: 20060429
  9. ROPIVACAINE [Concomitant]
     Indication: PROCEDURAL PAIN
     Dosage: 6 ML/DAY
     Route: 008
     Dates: start: 20060419, end: 20060420
  10. CODEINE PHOSPHATE [Concomitant]
     Dosage: UNK

REACTIONS (8)
  - ABDOMINAL CAVITY DRAINAGE [None]
  - ABDOMINAL DISTENSION [None]
  - ASCITES [None]
  - DUODENAL PERFORATION [None]
  - DUODENAL ULCER [None]
  - ENDOSCOPY [None]
  - GASTROINTESTINAL TUBE INSERTION [None]
  - POST PROCEDURAL BILE LEAK [None]
